FAERS Safety Report 16880102 (Version 1)
Quarter: 2019Q4

REPORT INFORMATION
  Report Type: Report from Study
  Country: US (occurrence: US)
  Receive Date: 20191003
  Receipt Date: 20191003
  Transmission Date: 20200122
  Serious: Yes (Other)
  Sender: FDA-Public Use
  Company Number: US-ROCHE-2416391

PATIENT
  Sex: Male
  Weight: 101.24 kg

DRUGS (3)
  1. ESBRIET [Suspect]
     Active Substance: PIRFENIDONE
     Indication: IDIOPATHIC PULMONARY FIBROSIS
     Route: 048
     Dates: start: 20180601
  2. AQUAPHOR [MINERAL WAX;PARAFFIN, LIQUID;PETROLATUM;WOOL ALCOHOLS] [Concomitant]
  3. NORCO [Concomitant]
     Active Substance: ACETAMINOPHEN\HYDROCODONE BITARTRATE

REACTIONS (5)
  - Peripheral swelling [Unknown]
  - Nausea [Unknown]
  - Skin exfoliation [Unknown]
  - Erythema [Unknown]
  - Rash [Unknown]
